FAERS Safety Report 17097125 (Version 1)
Quarter: 2019Q4

REPORT INFORMATION
  Report Type: Spontaneous
  Country: US (occurrence: US)
  Receive Date: 20191202
  Receipt Date: 20191202
  Transmission Date: 20200122
  Serious: No
  Sender: FDA-Public Use
  Company Number: US-GLAXOSMITHKLINE-US2019210767

PATIENT
  Age: 72 Year
  Sex: Male

DRUGS (1)
  1. FLONASE [Suspect]
     Active Substance: FLUTICASONE PROPIONATE
     Indication: HYPERSENSITIVITY
     Dosage: UNK

REACTIONS (3)
  - Nasal discomfort [Recovered/Resolved]
  - Nasal dryness [Recovered/Resolved]
  - Nasal ulcer [Recovered/Resolved]

NARRATIVE: CASE EVENT DATE: 20191122
